FAERS Safety Report 8605790-X (Version None)
Quarter: 2012Q3

REPORT INFORMATION
  Report Type: 
  Country: None (occurrence: None)
  Receive Date: 20120807
  Receipt Date: 20120730
  Transmission Date: 20120928
  Serious: Yes (Hospitalization)
  Sender: FDA-Public Use
  Company Number: AUR-APL-2012-03289

PATIENT
  Age: 65 Year
  Sex: Male

DRUGS (8)
  1. ATENOLOL [Concomitant]
  2. METFFORMIN HYDROCHLORIDE [Concomitant]
  3. PRAVASTATIN [Concomitant]
  4. ASPIRI (ACETYLSALICYLIC ACID) [Concomitant]
  5. GLIEPIRIDE (GLIMEPIRIDE) [Concomitant]
  6. LANSOPRAZOLE [Concomitant]
  7. PAROXETINE HYDROCHLORIDE [Concomitant]
  8. LISINOPRIL [Suspect]
     Indication: MYOCARDIAL INFARCTION
     Dosage: 20 MG (20 MG, 1 IN 1 D) ORAL
     Route: 048
     Dates: end: 20120222

REACTIONS (3)
  - RASH PRURITIC [None]
  - NEUTROPHILIA [None]
  - ANAPHYLACTIC REACTION [None]
